FAERS Safety Report 6908594-9 (Version None)
Quarter: 2010Q3

REPORT INFORMATION
  Report Type: 
  Country: None (occurrence: None)
  Receive Date: 20100805
  Receipt Date: 20100729
  Transmission Date: 20110219
  Serious: Yes (Hospitalization)
  Sender: FDA-Public Use
  Company Number: JP-MERCK-1006USA04428

PATIENT
  Age: 88 Year
  Sex: Male

DRUGS (2)
  1. JANUVIA [Suspect]
     Route: 048
     Dates: start: 20100301
  2. JANUVIA [Suspect]
     Route: 048
     Dates: start: 20100101, end: 20100602

REACTIONS (2)
  - ILEUS [None]
  - PNEUMONIA ASPIRATION [None]
